FAERS Safety Report 13146368 (Version 1)
Quarter: 2017Q1

REPORT INFORMATION
  Report Type: Spontaneous
  Country: US (occurrence: US)
  Receive Date: 20170124
  Receipt Date: 20170124
  Transmission Date: 20170428
  Serious: Yes (Hospitalization)
  Sender: FDA-Public Use
  Company Number: US-RELYPSA-RLY2017000316

PATIENT
  Age: 58 Year
  Sex: Female

DRUGS (8)
  1. APAP/CODEINE [Concomitant]
     Active Substance: ACETAMINOPHEN\CODEINE PHOSPHATE
  2. MINOXIDIL. [Concomitant]
     Active Substance: MINOXIDIL
  3. RENVELA [Concomitant]
     Active Substance: SEVELAMER CARBONATE
  4. LANTUS [Concomitant]
     Active Substance: INSULIN GLARGINE
  5. SENSIPAR [Concomitant]
     Active Substance: CINACALCET HYDROCHLORIDE
  6. VELPHORO [Concomitant]
     Active Substance: FERRIC OXYHYDROXIDE
  7. CLINDAMYCIN. [Concomitant]
     Active Substance: CLINDAMYCIN
  8. VELTASSA [Suspect]
     Active Substance: PATIROMER
     Indication: HYPERKALAEMIA
     Dosage: 8.4 G, QD
     Route: 048
     Dates: start: 20160708

REACTIONS (2)
  - Dizziness [Not Recovered/Not Resolved]
  - Leg amputation [Unknown]

NARRATIVE: CASE EVENT DATE: 201612
